FAERS Safety Report 18134003 (Version 1)
Quarter: 2020Q3

REPORT INFORMATION
  Report Type: Other
  Country: CH (occurrence: CH)
  Receive Date: 20200811
  Receipt Date: 20200811
  Transmission Date: 20201103
  Serious: Yes (Other)
  Sender: FDA-Public Use
  Company Number: CH-RARE DISEASE THERAPEUTICS, INC.-2088440

PATIENT
  Age: 55 Year
  Sex: Male

DRUGS (3)
  1. FIBRINOGEN CONCENTRATE (HUMAN) [Concomitant]
     Active Substance: FIBRINOGEN HUMAN
  2. PROTHROMBIN COMPLEX FACTORS CONCENTRATE (COAG FACTORS II, VII, IX, X, [Concomitant]
  3. ANAVIP [Suspect]
     Active Substance: PIT VIPER (CROTALINAE) IMMUNE GLOBULIN ANTIVENIN (EQUINE)

REACTIONS (10)
  - Acute kidney injury [Recovered/Resolved]
  - Microangiopathic haemolytic anaemia [Recovered/Resolved]
  - Pyrexia [Recovered/Resolved]
  - Blood creatine increased [Recovered/Resolved]
  - Hypertension [Recovered/Resolved]
  - Fibrin D dimer increased [Recovered/Resolved]
  - Haematuria [Recovered/Resolved]
  - Off label use [None]
  - Thrombocytopenia [Recovered/Resolved]
  - Respiratory failure [Recovered/Resolved]
